FAERS Safety Report 11376363 (Version 1)
Quarter: 2015Q3

REPORT INFORMATION
  Report Type: Spontaneous
  Country: BR (occurrence: BR)
  Receive Date: 20150813
  Receipt Date: 20150813
  Transmission Date: 20151125
  Serious: Yes (Other)
  Sender: FDA-Public Use
  Company Number: BR-ASTRAZENECA-2015SE77643

PATIENT
  Age: 71 Year
  Sex: Male
  Weight: 59 kg

DRUGS (7)
  1. LEXAPRO [Concomitant]
     Active Substance: ESCITALOPRAM OXALATE
     Indication: DEPRESSION
     Route: 048
     Dates: start: 201506
  2. STUB [Concomitant]
     Indication: PROSTATOMEGALY
     Dosage: DAILY
     Route: 048
     Dates: start: 2013
  3. DECADRON [Concomitant]
     Active Substance: DEXAMETHASONE
     Indication: MUSCULOSKELETAL CHEST PAIN
     Dates: start: 20150720
  4. OMEPRAZOLE. [Suspect]
     Active Substance: OMEPRAZOLE
     Indication: GASTRITIS
     Route: 048
     Dates: start: 1995
  5. XARELTO [Concomitant]
     Active Substance: RIVAROXABAN
     Indication: THROMBOSIS
     Dosage: DAILY
     Route: 048
     Dates: start: 201502
  6. FOLIC ACID. [Concomitant]
     Active Substance: FOLIC ACID
     Indication: ANAEMIA PROPHYLAXIS
     Dosage: DAILY
     Route: 048
     Dates: start: 201502
  7. IRESSA [Suspect]
     Active Substance: GEFITINIB
     Indication: LUNG NEOPLASM MALIGNANT
     Dosage: DAILY
     Route: 048
     Dates: start: 20150725

REACTIONS (7)
  - Pulmonary thrombosis [Recovering/Resolving]
  - Erythema [Not Recovered/Not Resolved]
  - Prostatomegaly [Recovering/Resolving]
  - Lung neoplasm malignant [Unknown]
  - Depression [Recovering/Resolving]
  - Anaemia [Recovering/Resolving]
  - Musculoskeletal chest pain [Recovering/Resolving]

NARRATIVE: CASE EVENT DATE: 2013
